FAERS Safety Report 7003052-8 (Version None)
Quarter: 2010Q3

REPORT INFORMATION
  Report Type: 
  Country: None (occurrence: None)
  Receive Date: 20100920
  Receipt Date: 20100329
  Transmission Date: 20110219
  Serious: No
  Sender: FDA-Public Use
  Company Number: US-ASTRAZENECA-2010SE13785

PATIENT
  Age: 20 Year
  Sex: Female
  Weight: 63.5 kg

DRUGS (1)
  1. SEROQUEL XR [Suspect]
     Indication: TACHYPHRENIA
     Route: 048

REACTIONS (3)
  - AMNESIA [None]
  - CONFUSIONAL STATE [None]
  - INSOMNIA [None]
